FAERS Safety Report 18004591 (Version 1)
Quarter: 2020Q3

REPORT INFORMATION
  Report Type: Spontaneous
  Country: NL (occurrence: FR)
  Receive Date: 20200709
  Receipt Date: 20200709
  Transmission Date: 20201103
  Serious: Yes (Life-Threatening)
  Sender: FDA-Public Use
  Company Number: FR-FRESENIUS KABI-FK202006915

PATIENT
  Age: 2 Year
  Sex: Male
  Weight: 12.9 kg

DRUGS (1)
  1. LIDOCAINE HYDROCHLORIDE INJECTION, USP [Suspect]
     Active Substance: LIDOCAINE HYDROCHLORIDE
     Indication: ANAESTHESIA
     Route: 042
     Dates: start: 20200616, end: 20200616

REACTIONS (3)
  - Generalised tonic-clonic seizure [Recovered/Resolved]
  - Accidental overdose [Recovered/Resolved]
  - Wrong dose [Recovered/Resolved]

NARRATIVE: CASE EVENT DATE: 20200616
